FAERS Safety Report 17283714 (Version 1)
Quarter: 2020Q1

REPORT INFORMATION
  Report Type: Spontaneous
  Country: CA (occurrence: CA)
  Receive Date: 20200117
  Receipt Date: 20200117
  Transmission Date: 20200409
  Serious: Yes (Other)
  Sender: FDA-Public Use
  Company Number: CA-PFIZER INC-2020018836

PATIENT
  Sex: Female

DRUGS (2)
  1. ADVIL LIQUI-GELS [Suspect]
     Active Substance: IBUPROFEN
     Dosage: 200 MG, UNK
  2. ADVIL ARTHRITIS PAIN [Suspect]
     Active Substance: IBUPROFEN
     Dosage: 400 MG, UNK

REACTIONS (5)
  - Vomiting [Recovering/Resolving]
  - Product use complaint [Recovering/Resolving]
  - Choking [Recovering/Resolving]
  - Product coating issue [Recovering/Resolving]
  - Foreign body in respiratory tract [Recovering/Resolving]
